FAERS Safety Report 8067746-8 (Version None)
Quarter: 2012Q1

REPORT INFORMATION
  Report Type: 
  Country: None (occurrence: None)
  Receive Date: 20120124
  Receipt Date: 20120114
  Transmission Date: 20120608
  Serious: Yes (Hospitalization, Other)
  Sender: FDA-Public Use
  Company Number: PL-ABBOTT-12P-129-0888723-00

PATIENT
  Age: 25 Year
  Sex: Male

DRUGS (2)
  1. HUMIRA [Suspect]
     Indication: CROHN'S DISEASE
     Route: 058
     Dates: start: 20110121, end: 20110121
  2. HUMIRA [Suspect]
     Route: 058
     Dates: start: 20110201, end: 20120101

REACTIONS (3)
  - GASTROINTESTINAL STOMA COMPLICATION [None]
  - WOUND DEHISCENCE [None]
  - ABDOMINAL INJURY [None]
